FAERS Safety Report 12717872 (Version 1)
Quarter: 2016Q3

REPORT INFORMATION
  Report Type: Spontaneous
  Country: US (occurrence: US)
  Receive Date: 20160906
  Receipt Date: 20160906
  Transmission Date: 20161109
  Serious: Yes (Hospitalization, Other)
  Sender: FDA-Public Use
  Company Number: US-PROCTER_AND_GAMBLE-GS16109090

PATIENT
  Age: 66 Year
  Sex: Male

DRUGS (13)
  1. P+GUNKNONPGCALCARBONATENPGZCAC# [Suspect]
     Active Substance: CALCIUM CARBONATE
     Indication: DYSPEPSIA
     Route: 048
  2. CALCIUM W/VIT.D3 [Suspect]
     Active Substance: CALCIUM\CHOLECALCIFEROL
     Indication: PROPHYLAXIS
  3. DISULFIRAM. [Concomitant]
     Active Substance: DISULFIRAM
  4. AMLODIPINE [Concomitant]
     Active Substance: AMLODIPINE BESYLATE
  5. ASPIRIN. [Concomitant]
     Active Substance: ASPIRIN
  6. TAMSULOSIN [Concomitant]
     Active Substance: TAMSULOSIN
  7. GLUCOSAMINE [Concomitant]
     Active Substance: GLUCOSAMINE
  8. TADALAFIL [Concomitant]
     Active Substance: TADALAFIL
  9. N-3 FATTY ACIDS [Concomitant]
  10. IBUPROFEN. [Suspect]
     Active Substance: IBUPROFEN
     Indication: MUSCULOSKELETAL DISORDER
  11. NAPROXEN. [Suspect]
     Active Substance: NAPROXEN
     Indication: MUSCULOSKELETAL DISORDER
  12. MULTIVITAMINS, COMBINATIONS [Concomitant]
  13. HYDROCHLOROTHIAZIDE. [Suspect]
     Active Substance: HYDROCHLOROTHIAZIDE

REACTIONS (25)
  - Blood creatinine increased [Recovered/Resolved]
  - pH urine increased [Unknown]
  - Specific gravity urine abnormal [Unknown]
  - Calcium ionised increased [Unknown]
  - Acute kidney injury [Recovered/Resolved]
  - Milk-alkali syndrome [Recovered/Resolved]
  - Anaemia [Unknown]
  - PO2 increased [Unknown]
  - Listless [Unknown]
  - Asthenia [Unknown]
  - Anion gap increased [Unknown]
  - Urinary sediment present [Unknown]
  - Blood urea increased [Unknown]
  - PCO2 decreased [Unknown]
  - Blood bicarbonate increased [Unknown]
  - Hypercalcaemia [Recovered/Resolved]
  - Malaise [Recovered/Resolved]
  - Urine analysis abnormal [Unknown]
  - Metabolic alkalosis [Unknown]
  - C-reactive protein increased [Unknown]
  - Carbon dioxide increased [Unknown]
  - Glomerular filtration rate decreased [Unknown]
  - Blood pH increased [Unknown]
  - White blood cells urine positive [Unknown]
  - Polyuria [Recovered/Resolved]
